FAERS Safety Report 5754103-X (Version None)
Quarter: 2008Q2

REPORT INFORMATION
  Report Type: 
  Country: None (occurrence: None)
  Receive Date: 20080530
  Receipt Date: 20080527
  Transmission Date: 20081010
  Serious: Yes (Death, Hospitalization, Other)
  Sender: FDA-Public Use
  Company Number: PHEH2006US01234

PATIENT
  Sex: Female
  Weight: 57 kg

DRUGS (10)
  1. ZOMETA [Suspect]
     Indication: METASTASES TO BONE
     Dosage: 4MG Q4WKS
     Route: 042
     Dates: start: 20021115, end: 20050801
  2. AREDIA [Suspect]
     Indication: METASTASES TO BONE
     Dosage: 90MG Q4WKS
     Route: 042
     Dates: start: 20040312, end: 20041221
  3. PROCRIT [Concomitant]
     Indication: ANAEMIA
     Dosage: 40K-60K PRN
  4. VELCADE [Concomitant]
     Dosage: 2 MG, UNK
     Dates: start: 20040419, end: 20040611
  5. THALIDOMIDE [Concomitant]
     Indication: MULTIPLE MYELOMA
     Dosage: 50 MG, UNK
     Route: 048
     Dates: start: 20040419, end: 20040516
  6. NEXIUM [Concomitant]
     Dosage: 40 MG, QD
     Route: 048
  7. CYMBALTA [Concomitant]
     Dosage: 60 MG, QHS
     Route: 048
  8. VIOXX [Concomitant]
     Dosage: 25 MG, QD
     Route: 048
  9. OXYCONTIN [Concomitant]
     Indication: PAIN
     Dosage: 40MG PRN
     Route: 048
  10. DEXAMETHASONE TAB [Concomitant]
     Indication: PAIN
     Dosage: PULSE THERAPY PRN

REACTIONS (21)
  - BONE DISORDER [None]
  - CHRONIC OBSTRUCTIVE PULMONARY DISEASE [None]
  - DEHYDRATION [None]
  - DIALYSIS [None]
  - ERYTHEMA [None]
  - FALL [None]
  - FISTULA [None]
  - MALIGNANT NEOPLASM PROGRESSION [None]
  - MENTAL STATUS CHANGES [None]
  - NEUROPATHY PERIPHERAL [None]
  - OSTEOMYELITIS [None]
  - OSTEONECROSIS [None]
  - PAIN [None]
  - PAIN IN EXTREMITY [None]
  - PNEUMONIA [None]
  - RENAL FAILURE [None]
  - RESPIRATORY FAILURE [None]
  - SKIN NODULE [None]
  - SWELLING [None]
  - TOOTH LOSS [None]
  - WOUND SECRETION [None]
